FAERS Safety Report 4955799-2 (Version None)
Quarter: 2006Q1

REPORT INFORMATION
  Report Type: 
  Country: None (occurrence: None)
  Receive Date: 20060327
  Receipt Date: 20060327
  Transmission Date: 20060701
  Serious: Yes (Other)
  Sender: FDA-Public Use
  Company Number: None

PATIENT
  Sex: Male
  Weight: 78.4 kg

DRUGS (1)
  1. ACETADOTE [Suspect]
     Indication: DRUG TOXICITY
     Dosage: SEE IMAGE
     Route: 040
     Dates: start: 20060325, end: 20060325

REACTIONS (3)
  - ADVERSE DRUG REACTION [None]
  - PRURITUS [None]
  - URTICARIA [None]
